FAERS Safety Report 5109959-0 (Version None)
Quarter: 2006Q3

REPORT INFORMATION
  Report Type: 
  Country: None (occurrence: None)
  Receive Date: 20060921
  Receipt Date: 20060912
  Transmission Date: 20061208
  Serious: Yes (Hospitalization, Other)
  Sender: FDA-Public Use
  Company Number: GB-JNJFOC-20060903029

PATIENT
  Sex: Female
  Weight: 62.8 kg

DRUGS (12)
  1. REMICADE [Suspect]
     Indication: RHEUMATOID ARTHRITIS
     Route: 042
  2. PREDNISONE [Concomitant]
     Route: 065
  3. METHOTREXATE [Concomitant]
     Route: 065
  4. PREDNISOLON [Concomitant]
     Route: 065
  5. CODYDRAMOL [Concomitant]
     Route: 065
  6. FUROSEMIDE [Concomitant]
     Route: 065
  7. WARFARIN [Concomitant]
     Route: 065
  8. AMIODARONE HCL [Concomitant]
     Route: 065
  9. FOSAMAX [Concomitant]
     Route: 065
  10. FOLIC ACID [Concomitant]
     Route: 065
  11. ALBUTEROL SPIROS [Concomitant]
     Route: 055
  12. BECLOMETHASONE DIPROPIONATE [Concomitant]
     Route: 065

REACTIONS (5)
  - CARDIOGENIC SHOCK [None]
  - LACTIC ACIDOSIS [None]
  - RENAL FAILURE [None]
  - SEPSIS [None]
  - VENTRICULAR TACHYCARDIA [None]
